FAERS Safety Report 6725118-X (Version None)
Quarter: 2010Q2

REPORT INFORMATION
  Report Type: 
  Country: None (occurrence: None)
  Receive Date: 20100514
  Receipt Date: 20100507
  Transmission Date: 20101027
  Serious: Yes (Hospitalization)
  Sender: FDA-Public Use
  Company Number: FR-ABBOTT-09P-056-0568066-00

PATIENT
  Age: 76 Year
  Sex: Male

DRUGS (10)
  1. ODRIK [Suspect]
     Indication: HYPERTENSION
     Route: 048
  2. SEROPLEX FILM-COATED TABLETS [Interacting]
     Indication: DRUG USE FOR UNKNOWN INDICATION
     Route: 048
  3. FUROSEMIDE [Interacting]
     Indication: HYPERTENSION
     Route: 048
  4. TEMERIT [Interacting]
     Indication: SUBILEUS
     Route: 048
  5. TOPALGIC [Concomitant]
     Indication: DRUG USE FOR UNKNOWN INDICATION
  6. DIFFU K [Concomitant]
     Indication: DRUG USE FOR UNKNOWN INDICATION
  7. ASPEGIC 1000 [Concomitant]
     Indication: DRUG USE FOR UNKNOWN INDICATION
  8. CRESTOR [Concomitant]
     Indication: DRUG USE FOR UNKNOWN INDICATION
  9. FORLAX [Concomitant]
     Indication: DRUG USE FOR UNKNOWN INDICATION
  10. PREVISCAN [Concomitant]
     Indication: DRUG USE FOR UNKNOWN INDICATION

REACTIONS (22)
  - AGITATION [None]
  - AMNESTIC DISORDER [None]
  - AMYOTROPHY [None]
  - ASTHENIA [None]
  - BILIARY DILATATION [None]
  - BRADYCARDIA [None]
  - CHOLELITHIASIS [None]
  - DECREASED APPETITE [None]
  - DEHYDRATION [None]
  - DRUG INTERACTION [None]
  - DYSURIA [None]
  - FALL [None]
  - GENERAL PHYSICAL HEALTH DETERIORATION [None]
  - HUMERUS FRACTURE [None]
  - HYPOTENSION [None]
  - JUGULAR VEIN DISTENSION [None]
  - MALAISE [None]
  - ORTHOSTATIC HYPOTENSION [None]
  - PERSECUTORY DELUSION [None]
  - TREMOR [None]
  - URINARY INCONTINENCE [None]
  - URINARY RETENTION [None]
